FAERS Safety Report 11677409 (Version 1)
Quarter: 2015Q4

REPORT INFORMATION
  Report Type: Spontaneous
  Country: US (occurrence: US)
  Receive Date: 20151027
  Receipt Date: 20151027
  Transmission Date: 20160304
  Serious: No
  Sender: FDA-Public Use
  Company Number: US-ELI_LILLY_AND_COMPANY-US201010003486

PATIENT
  Sex: Female

DRUGS (1)
  1. FORTEO [Suspect]
     Active Substance: TERIPARATIDE
     Indication: OSTEOPOROSIS
     Dates: start: 20100811

REACTIONS (4)
  - Back pain [Unknown]
  - Dyspnoea [Not Recovered/Not Resolved]
  - Kyphosis [Not Recovered/Not Resolved]
  - Posture abnormal [Not Recovered/Not Resolved]
